FAERS Safety Report 21664619 (Version 1)
Quarter: 2022Q4

REPORT INFORMATION
  Report Type: Spontaneous
  Country: GB (occurrence: GB)
  Receive Date: 20221130
  Receipt Date: 20221130
  Transmission Date: 20230113
  Serious: Yes (Other)
  Sender: FDA-Public Use
  Company Number: None

PATIENT
  Age: 69 Year
  Sex: Male
  Weight: 103 kg

DRUGS (13)
  1. HALDOL [Suspect]
     Active Substance: HALOPERIDOL
     Indication: Product used for unknown indication
     Route: 065
     Dates: start: 20220508
  2. INSULIN HUMAN [Concomitant]
     Active Substance: INSULIN HUMAN
     Route: 057
     Dates: start: 20210309
  3. HYDROXYZINE [Concomitant]
     Active Substance: HYDROXYZINE HYDROCHLORIDE
     Dates: start: 20220307
  4. MOMETASONE [Concomitant]
     Active Substance: MOMETASONE
     Dates: start: 20171126
  5. RIFAXIMIN [Concomitant]
     Active Substance: RIFAXIMIN
     Dates: start: 20210805
  6. SPIRONOLACTONE [Concomitant]
     Active Substance: SPIRONOLACTONE
     Dates: start: 20210816
  7. COTRIMOXAZOLE [Concomitant]
     Active Substance: SULFAMETHOXAZOLE\TRIMETHOPRIM
     Indication: Product used for unknown indication
     Route: 065
     Dates: start: 20210805
  8. CHOLESTYRAMINE [Concomitant]
     Active Substance: CHOLESTYRAMINE
     Indication: Product used for unknown indication
     Route: 065
     Dates: start: 20220504
  9. LACTULOSE [Concomitant]
     Active Substance: LACTULOSE
     Dates: start: 20210422
  10. LOPERAMIDE [Concomitant]
     Active Substance: LOPERAMIDE
     Dates: start: 20220425
  11. MEMANTINE [Concomitant]
     Active Substance: MEMANTINE
     Dosage: TAKE AT NIGHT
     Dates: start: 20210816
  12. MENTHOL [Concomitant]
     Active Substance: MENTHOL
     Indication: Pruritus
     Dates: start: 20220503, end: 20220510
  13. ACETAMINOPHEN [Concomitant]
     Active Substance: ACETAMINOPHEN
     Dosage: TAKE ONE OR TWO EVERY FOUR TO SIX HOURS
     Dates: start: 20211125

REACTIONS (1)
  - Hallucination [Recovered/Resolved]

NARRATIVE: CASE EVENT DATE: 20220516
